FAERS Safety Report 14494755 (Version 1)
Quarter: 2018Q1

REPORT INFORMATION
  Report Type: Spontaneous
  Country: US (occurrence: US)
  Receive Date: 20180206
  Receipt Date: 20180206
  Transmission Date: 20180509
  Serious: Yes (Hospitalization, Other)
  Sender: FDA-Public Use
  Company Number: US-PFIZER INC-2014197385

PATIENT
  Age: 76 Year
  Sex: Female
  Weight: 50.8 kg

DRUGS (2)
  1. TYVASO [Concomitant]
     Active Substance: TREPROSTINIL
     Indication: LUNG DISORDER
     Dosage: UNK UNK, 3X/DAY (5 BREATHS INHALED)
     Route: 055
  2. REVATIO [Suspect]
     Active Substance: SILDENAFIL CITRATE
     Indication: LUNG DISORDER
     Dosage: 20 MG, 3X/DAY
     Route: 048

REACTIONS (2)
  - Vomiting [Recovered/Resolved]
  - Vaginal haemorrhage [Recovered/Resolved]
